FAERS Safety Report 15367857 (Version 1)
Quarter: 2018Q3

REPORT INFORMATION
  Report Type: Spontaneous
  Country: US (occurrence: US)
  Receive Date: 20180904
  Receipt Date: 20180904
  Transmission Date: 20181010
  Serious: Yes (Hospitalization)
  Sender: FDA-Public Use
  Company Number: None

PATIENT
  Age: 77 Year
  Sex: Female

DRUGS (1)
  1. FORTEO [Suspect]
     Active Substance: TERIPARATIDE
     Indication: OSTEOPOROSIS
     Route: 058
     Dates: start: 20180122

REACTIONS (6)
  - Pulmonary thrombosis [None]
  - Intracardiac thrombus [None]
  - Chest pain [None]
  - Arthralgia [None]
  - Thrombosis [None]
  - Pain in jaw [None]

NARRATIVE: CASE EVENT DATE: 20180801
